FAERS Safety Report 25044062 (Version 1)
Quarter: 2025Q1

REPORT INFORMATION
  Report Type: Spontaneous
  Country: US (occurrence: US)
  Receive Date: 20250306
  Receipt Date: 20250306
  Transmission Date: 20250408
  Serious: No
  Sender: AZURITY PHARMACEUTICALS
  Company Number: US-AZURITY PHARMACEUTICALS, INC.-AZR202411-001075

PATIENT
  Age: 11 Year
  Sex: Female

DRUGS (1)
  1. SKLICE [Suspect]
     Active Substance: IVERMECTIN
     Indication: Lice infestation
     Route: 065
     Dates: start: 20241104

REACTIONS (2)
  - Drug ineffective [Unknown]
  - Liquid product physical issue [Unknown]
